FAERS Safety Report 14146592 (Version 1)
Quarter: 2017Q4

REPORT INFORMATION
  Report Type: Spontaneous
  Country: BR (occurrence: BR)
  Receive Date: 20171031
  Receipt Date: 20171031
  Transmission Date: 20180321
  Serious: Yes (Hospitalization, Other)
  Sender: FDA-Public Use
  Company Number: BR-ASTRAZENECA-2017SF09564

PATIENT
  Age: 687 Month
  Sex: Male
  Weight: 70 kg

DRUGS (2)
  1. GLIBENCLAMIDE+METFORMIN [Concomitant]
     Active Substance: GLYBURIDE\METFORMIN
     Indication: TYPE 2 DIABETES MELLITUS
  2. XIGDUO XR [Suspect]
     Active Substance: DAPAGLIFLOZIN PROPANEDIOL\METFORMIN HYDROCHLORIDE
     Indication: TYPE 2 DIABETES MELLITUS
     Dosage: 5 MG/1000 MG,TWO TIMES A DAY
     Route: 048
     Dates: start: 2017, end: 20171006

REACTIONS (5)
  - Pharyngeal ulceration [Not Recovered/Not Resolved]
  - Dehydration [Recovered/Resolved]
  - Gastric ulcer [Not Recovered/Not Resolved]
  - Metabolic acidosis [Recovered/Resolved]
  - Aphasia [Not Recovered/Not Resolved]

NARRATIVE: CASE EVENT DATE: 201710
